FAERS Safety Report 8027772-1 (Version None)
Quarter: 2012Q1

REPORT INFORMATION
  Report Type: 
  Country: None (occurrence: None)
  Receive Date: 20120106
  Receipt Date: 20120106
  Transmission Date: 20120608
  Serious: Yes (Other)
  Sender: FDA-Public Use
  Company Number: None

PATIENT
  Age: 22 Year
  Sex: Female
  Weight: 63.502 kg

DRUGS (1)
  1. COMPAZINE [Suspect]
     Indication: INFLUENZA
     Dates: start: 20110501, end: 20110502

REACTIONS (11)
  - FATIGUE [None]
  - DEREALISATION [None]
  - TREMOR [None]
  - PANIC ATTACK [None]
  - DIZZINESS [None]
  - ACTIVITIES OF DAILY LIVING IMPAIRED [None]
  - INAPPROPRIATE AFFECT [None]
  - PALPITATIONS [None]
  - CRYING [None]
  - SCREAMING [None]
  - ANXIETY DISORDER [None]
